FAERS Safety Report 13649620 (Version 3)
Quarter: 2017Q4

REPORT INFORMATION
  Report Type: Spontaneous
  Country: JP (occurrence: JP)
  Receive Date: 20170614
  Receipt Date: 20171212
  Transmission Date: 20180320
  Serious: Yes (Death)
  Sender: FDA-Public Use
  Company Number: JP-ROCHE-1949549

PATIENT
  Sex: Female
  Weight: 70 kg

DRUGS (3)
  1. OXALIPLATIN. [Suspect]
     Active Substance: OXALIPLATIN
     Dosage: ONCE DOSAGE:190(UNIT UNCERTANTY)
     Route: 041
     Dates: start: 20160815, end: 20160905
  2. XELODA [Suspect]
     Active Substance: CAPECITABINE
     Indication: COLON CANCER
     Dosage: DOSAGE IS UNCERTAIN.
     Route: 048
     Dates: start: 20160523, end: 20160919
  3. OXALIPLATIN. [Suspect]
     Active Substance: OXALIPLATIN
     Indication: COLON CANCER
     Dosage: ONCE DOSAGE:210(UNIT UNCERTANTY)
     Route: 041
     Dates: start: 20160523, end: 20160725

REACTIONS (2)
  - Interstitial lung disease [Fatal]
  - Off label use [Fatal]
